FAERS Safety Report 17141788 (Version 3)
Quarter: 2020Q1

REPORT INFORMATION
  Report Type: Spontaneous
  Country: FR (occurrence: FR)
  Receive Date: 20191211
  Receipt Date: 20200324
  Transmission Date: 20200409
  Serious: Yes (Hospitalization, Other)
  Sender: FDA-Public Use
  Company Number: FR-MYLANLABS-2019M1121021

PATIENT
  Age: 65 Year
  Sex: Male
  Weight: 66.4 kg

DRUGS (25)
  1. ACETYLSALICYLIC ACID [Suspect]
     Active Substance: ASPIRIN
     Indication: CEREBROVASCULAR ACCIDENT
     Dosage: 1 DF, QD (0-1-0)
     Route: 048
     Dates: start: 20190510, end: 20190521
  2. ZYMAD [Suspect]
     Active Substance: CHOLECALCIFEROL
     Indication: VITAMIN D DEFICIENCY
     Dosage: 80000 IU, UNK (QOW)
     Route: 048
     Dates: start: 20190517
  3. LOVENOX [Suspect]
     Active Substance: ENOXAPARIN SODIUM
     Indication: THROMBOSIS PROPHYLAXIS
     Dosage: 4000 IU, QD
     Route: 058
     Dates: start: 20190509, end: 20190622
  4. INDAPAMIDE ARROW [Suspect]
     Active Substance: INDAPAMIDE
     Indication: HYPERTENSION
     Dosage: 1-0-0
     Route: 048
     Dates: start: 20190510, end: 20190525
  5. LEVOFLOXACIN. [Suspect]
     Active Substance: LEVOFLOXACIN
     Indication: PROSTATITIS
     Dosage: 1000 MG, QD
     Route: 048
     Dates: start: 20190611, end: 20190616
  6. SODIUM BICARBONATE. [Suspect]
     Active Substance: SODIUM BICARBONATE
     Indication: CONSTIPATION
     Dosage: 2 DF, 1D
     Route: 048
     Dates: start: 20190515, end: 20190622
  7. PARACETAMOL [Suspect]
     Active Substance: ACETAMINOPHEN
     Indication: PAIN
     Dosage: 500 MG, PRN (MAX 6/ DAY)
     Route: 048
     Dates: start: 20190524
  8. PRINCI B                           /01262901/ [Suspect]
     Active Substance: PYRIDOXINE\THIAMINE
     Indication: ALCOHOLIC SEIZURE
     Dosage: 1 DF, BID
     Route: 048
     Dates: start: 20190510, end: 20190622
  9. LEVOFLOXACINA ACCORD [Suspect]
     Active Substance: LEVOFLOXACIN
     Indication: PROSTATITIS
     Dosage: 1000 MILLIGRAM, QD
     Route: 048
     Dates: start: 20190611, end: 20190616
  10. SODIUM BICARBONATE. [Suspect]
     Active Substance: SODIUM BICARBONATE
     Indication: CONSTIPATION
     Dosage: 2-0-0
     Route: 048
     Dates: start: 20190515, end: 20190522
  11. ENOXAPARIN [Suspect]
     Active Substance: ENOXAPARIN
     Indication: THROMBOSIS PROPHYLAXIS
     Dosage: UNK
  12. KARDEGIC [Suspect]
     Active Substance: ASPIRIN DL-LYSINE
     Dosage: 1-0-0
     Route: 048
     Dates: start: 20190522
  13. MAG 2                              /00454301/ [Suspect]
     Active Substance: MAGNESIUM CARBONATE
     Indication: BLOOD MAGNESIUM DECREASED
     Dosage: 1 DF, BID (1-0-1)
     Route: 048
     Dates: start: 20190524, end: 20190528
  14. DIFFU K [Suspect]
     Active Substance: POTASSIUM CHLORIDE
     Indication: HYPOKALAEMIA
     Dosage: 2 DF, BID
     Route: 048
     Dates: start: 20190524, end: 20190622
  15. ATORVASTATINE ARROW [Suspect]
     Active Substance: ATORVASTATIN
     Indication: HYPERCHOLESTEROLAEMIA
     Dosage: 0-0-1
     Route: 048
     Dates: start: 20190513, end: 20190622
  16. ASPEGIC                            /00002701/ [Suspect]
     Active Substance: ASPIRIN
     Indication: CEREBROVASCULAR ACCIDENT
     Dosage: 0-1-0
     Route: 048
     Dates: start: 20190510, end: 20190521
  17. INDAPAMIDE. [Suspect]
     Active Substance: INDAPAMIDE
     Indication: HYPERTENSION
     Dosage: 1 DF, 1D (1-0-0)
     Route: 048
     Dates: start: 20190510, end: 20190525
  18. ATORVASTATIN [Suspect]
     Active Substance: ATORVASTATIN
     Indication: HYPERCHOLESTEROLAEMIA
     Dosage: 10 MG, QD
     Route: 048
     Dates: start: 20190513, end: 20190622
  19. KARDEGIC [Suspect]
     Active Substance: ASPIRIN DL-LYSINE
     Indication: CEREBROVASCULAR ACCIDENT
     Dosage: 1 DF, 1D (1-0-0)
     Route: 048
     Dates: start: 20190522
  20. OXCARBAZEPINE. [Suspect]
     Active Substance: OXCARBAZEPINE
     Indication: EPILEPSY
     Dosage: 2 DF, BID (2-0-2)
     Route: 048
     Dates: start: 20190523, end: 20190621
  21. DIFFU K [Suspect]
     Active Substance: POTASSIUM CHLORIDE
     Dosage: 2 DF, BID
     Route: 048
     Dates: start: 20190524, end: 20190622
  22. NICOTINE. [Suspect]
     Active Substance: NICOTINE
     Indication: EX-TOBACCO USER
     Dosage: 1 DF, 1D (1-0-0)
     Route: 062
     Dates: start: 20190524
  23. SERESTA [Suspect]
     Active Substance: OXAZEPAM
     Indication: INSOMNIA
     Dosage: 10 MG, QD
     Route: 048
     Dates: start: 20190524, end: 20190622
  24. LOXEN                              /00639802/ [Suspect]
     Active Substance: NICARDIPINE HYDROCHLORIDE
     Indication: HYPERTENSION
     Dosage: 20 MG, PRN (MAX 3/ DAY)
     Route: 048
     Dates: start: 20190524, end: 20190529
  25. DOLIPRANE [Suspect]
     Active Substance: ACETAMINOPHEN
     Indication: PAIN
     Dosage: SI BESOIN (MAX6/JOUR)
     Route: 048
     Dates: start: 20190524

REACTIONS (1)
  - Drug reaction with eosinophilia and systemic symptoms [Recovered/Resolved]

NARRATIVE: CASE EVENT DATE: 20190616
